FAERS Safety Report 4535906-6 (Version None)
Quarter: 2004Q4

REPORT INFORMATION
  Report Type: 
  Country: None (occurrence: None)
  Receive Date: 20041223
  Receipt Date: 20041214
  Transmission Date: 20050328
  Serious: Yes (Hospitalization)
  Sender: FDA-Public Use
  Company Number: US-JNJFOC-20041204372

PATIENT
  Sex: Female
  Weight: 95.26 kg

DRUGS (17)
  1. REMICADE [Suspect]
     Indication: BEHCET'S SYNDROME
     Route: 042
  2. PREDNISONE [Concomitant]
  3. CYCLOSPORINE [Concomitant]
  4. TRENTAL [Concomitant]
  5. COLCHICINE [Concomitant]
  6. DIAMOX [Concomitant]
  7. TEGRETOL [Concomitant]
  8. LASIX [Concomitant]
  9. PEPCID [Concomitant]
  10. WELLBUTRIN [Concomitant]
  11. BACTRIM DS [Concomitant]
  12. BACTRIM DS [Concomitant]
     Dosage: MON, WED, AND FRI
  13. FLAGYL [Concomitant]
  14. MINOCYCLINE HCL [Concomitant]
  15. ZYRTEC [Concomitant]
  16. MULTIVITAMIN [Concomitant]
  17. THALOMID [Concomitant]

REACTIONS (2)
  - BEHCET'S SYNDROME [None]
  - RASH VESICULAR [None]
